FAERS Safety Report 8084168-4 (Version None)
Quarter: 2012Q1

REPORT INFORMATION
  Report Type: 
  Country: None (occurrence: None)
  Receive Date: 20120128
  Receipt Date: 20110208
  Transmission Date: 20120608
  Serious: No
  Sender: FDA-Public Use
  Company Number: US-ABBOTT-11P-163-0704785-00

PATIENT
  Sex: Female
  Weight: 92.162 kg

DRUGS (5)
  1. HUMIRA [Suspect]
  2. LEVOXYL [Concomitant]
     Indication: HYPOTHYROIDISM
  3. OXYBUTYNIN [Concomitant]
     Indication: URGE INCONTINENCE
  4. HUMIRA [Suspect]
     Indication: PSORIASIS
     Dates: start: 20090501, end: 20110101
  5. CENESTIN [Concomitant]
     Indication: HORMONE REPLACEMENT THERAPY

REACTIONS (5)
  - COUGH [None]
  - OROPHARYNGEAL PAIN [None]
  - BRONCHITIS [None]
  - NASAL CONGESTION [None]
  - HYPOAESTHESIA [None]
